FAERS Safety Report 10253385 (Version 2)
Quarter: 2014Q3

REPORT INFORMATION
  Report Type: Spontaneous
  Country: GB (occurrence: GB)
  Receive Date: 20140623
  Receipt Date: 20140806
  Transmission Date: 20150326
  Serious: Yes (Death)
  Sender: FDA-Public Use
  Company Number: GB-JNJFOC-20140609065

PATIENT
  Sex: Female
  Weight: 87.87 kg

DRUGS (9)
  1. FULTIUM D3 [Concomitant]
     Indication: VITAMIN D
     Route: 065
     Dates: start: 20131201, end: 20140607
  2. E45 [Concomitant]
     Route: 065
  3. NORETHINDRONE AND ETHINYL ESTRADIOL [Suspect]
     Active Substance: ETHINYL ESTRADIOL\NORETHINDRONE
     Indication: CONTRACEPTION
     Dosage: FOR 21 DAYS AND REPEAT AFTER 7 DAYS.
     Route: 048
     Dates: start: 20140430, end: 20140607
  4. ARIPIPRAZOLE [Suspect]
     Active Substance: ARIPIPRAZOLE
     Indication: SCHIZOPHRENIA
     Route: 065
     Dates: start: 20140114, end: 20140607
  5. VITAMIN C [Concomitant]
     Active Substance: ASCORBIC ACID
     Route: 065
     Dates: start: 20130601
  6. PARACETAMOL [Concomitant]
     Active Substance: ACETAMINOPHEN
     Route: 065
  7. OILATUM [Concomitant]
     Route: 065
  8. NICOTINE. [Concomitant]
     Active Substance: NICOTINE
     Route: 065
  9. ARIPIPRAZOLE [Suspect]
     Active Substance: ARIPIPRAZOLE
     Indication: PARANOIA
     Route: 065
     Dates: start: 20140114, end: 20140607

REACTIONS (1)
  - Pulmonary embolism [Fatal]
